FAERS Safety Report 7808946-9 (Version None)
Quarter: 2011Q4

REPORT INFORMATION
  Report Type: 
  Country: None (occurrence: None)
  Receive Date: 20111007
  Receipt Date: 20110927
  Transmission Date: 20120403
  Serious: Yes (Death, Hospitalization)
  Sender: FDA-Public Use
  Company Number: 1063617

PATIENT
  Age: 69 Year
  Sex: Male

DRUGS (4)
  1. OXALIPLATIN [Suspect]
     Indication: ADENOCARCINOMA
     Dosage: 85 MG/M^2, INTRAVENOUS (NOT OTHERWISE SPECIFIED), 65 MG/M^2, INTRAVENOUS (NOT OTHERWISE SPECIFIED)
     Route: 042
  2. LEUCOVORIN CALCIUM [Concomitant]
  3. FLUOROURACIL [Concomitant]
  4. LISINOPRIL [Concomitant]

REACTIONS (6)
  - EOSINOPHILIC PNEUMONIA [None]
  - INTERSTITIAL LUNG DISEASE [None]
  - TOXICITY TO VARIOUS AGENTS [None]
  - DIFFUSE ALVEOLAR DAMAGE [None]
  - PULMONARY TOXICITY [None]
  - PNEUMONITIS [None]
